FAERS Safety Report 13795407 (Version 5)
Quarter: 2017Q4

REPORT INFORMATION
  Report Type: Report from Study
  Country: None (occurrence: HU)
  Receive Date: 20170726
  Receipt Date: 20171031
  Transmission Date: 20180320
  Serious: Yes (Hospitalization, Other)
  Sender: FDA-Public Use
  Company Number: HU-ABBVIE-17P-076-2047369-00

PATIENT
  Age: 76 Year
  Sex: Male

DRUGS (7)
  1. DUODOPA [Suspect]
     Active Substance: CARBIDOPA\LEVODOPA
     Dosage: MORNING DOSE 8.0ML; CONTINUOUS DOSE 2.5ML/H;EXTRA DOSE 1.3ML
     Route: 050
     Dates: start: 2017, end: 2017
  2. NEBILET [Concomitant]
     Active Substance: NEBIVOLOL
     Indication: PROPHYLAXIS
     Dosage: 1 TABLET IN THE EVEINING
  3. CONTROLOC [Concomitant]
     Active Substance: PANTOPRAZOLE SODIUM
     Indication: GASTRIC DISORDER
  4. DUODOPA [Suspect]
     Active Substance: CARBIDOPA\LEVODOPA
     Indication: PARKINSON^S DISEASE
     Dosage: MORNING DOSE 8.0ML; CONTINUOUS DOSE 2.3ML/H;EXTRA DOSE 1.0ML
     Route: 050
     Dates: start: 20170627, end: 2017
  5. XALACOM [Concomitant]
     Active Substance: LATANOPROST\TIMOLOL MALEATE
     Indication: GLAUCOMA
     Dosage: 0,05 MG/ML+5 MG/ML, 1-1 DROPS IN EACH EYE
     Route: 047
     Dates: start: 2007
  6. PORTIRON HCT [Concomitant]
     Indication: HYPERTENSION
     Dosage: 100/25MG 1 TABLET IN THE MORNING
  7. CONTROLOC [Concomitant]
     Active Substance: PANTOPRAZOLE SODIUM
     Indication: PROPHYLAXIS

REACTIONS (17)
  - Cerebrovascular accident [Not Recovered/Not Resolved]
  - Confusional state [Recovered/Resolved]
  - Disorientation [Unknown]
  - Anaemia [Unknown]
  - Muscular weakness [Not Recovered/Not Resolved]
  - Decreased appetite [Not Recovered/Not Resolved]
  - Hypoxic-ischaemic encephalopathy [Unknown]
  - Mobility decreased [Not Recovered/Not Resolved]
  - Peripheral coldness [Not Recovered/Not Resolved]
  - Aspiration [Not Recovered/Not Resolved]
  - Hypotonia [Not Recovered/Not Resolved]
  - Speech disorder [Not Recovered/Not Resolved]
  - Hypotension [Unknown]
  - Dysphagia [Not Recovered/Not Resolved]
  - Asthenia [Not Recovered/Not Resolved]
  - Confusional state [Recovering/Resolving]
  - Small intestinal haemorrhage [Recovering/Resolving]

NARRATIVE: CASE EVENT DATE: 2017
